FAERS Safety Report 9195458 (Version 1)
Quarter: 2013Q1

REPORT INFORMATION
  Report Type: Spontaneous
  Country: US (occurrence: US)
  Receive Date: 20130328
  Receipt Date: 20130328
  Transmission Date: 20140127
  Serious: Yes (Death)
  Sender: FDA-Public Use
  Company Number: US-AMGEN-USASP2013021017

PATIENT
  Age: 36 Year
  Sex: Female

DRUGS (2)
  1. NEULASTA [Suspect]
     Indication: CONVALESCENT
     Dosage: UNK
     Dates: end: 20121026
  2. CHEMOTHERAPEUTICS [Concomitant]
     Indication: NEOPLASM MALIGNANT
     Dosage: UNK

REACTIONS (1)
  - Death [Fatal]
